FAERS Safety Report 8594614 (Version 3)
Quarter: 2013Q1

REPORT INFORMATION
  Report Type: Spontaneous
  Country: BE (occurrence: BE)
  Receive Date: 20120604
  Receipt Date: 20130314
  Transmission Date: 20140127
  Serious: Yes (Other)
  Sender: FDA-Public Use
  Company Number: BE-GLAXOSMITHKLINE-B0805208A

PATIENT
  Age: 49 Year
  Sex: Female
  Weight: 61 kg

DRUGS (4)
  1. TROBALT [Suspect]
     Indication: TEMPORAL LOBE EPILEPSY
     Dosage: 400MG THREE TIMES PER DAY
     Route: 065
     Dates: start: 20120522
  2. LAMICTAL [Concomitant]
     Dosage: 100MG TWICE PER DAY
  3. TOPAMAX [Concomitant]
  4. DEPAKINE [Concomitant]

REACTIONS (15)
  - Hallucination [Recovering/Resolving]
  - Aphasia [Unknown]
  - Lymphatic disorder [Unknown]
  - Disturbance in attention [Unknown]
  - Ataxia [Unknown]
  - Myoclonus [Unknown]
  - Nausea [Unknown]
  - Visual impairment [Recovering/Resolving]
  - Coordination abnormal [Unknown]
  - Dysarthria [Unknown]
  - Tic [Unknown]
  - Amnesia [Unknown]
  - Memory impairment [Unknown]
  - Balance disorder [Unknown]
  - Somnolence [Unknown]
